FAERS Safety Report 5707367-2 (Version None)
Quarter: 2008Q2

REPORT INFORMATION
  Report Type: 
  Country: None (occurrence: None)
  Receive Date: 20080416
  Receipt Date: 20080407
  Transmission Date: 20081010
  Serious: Yes (Other)
  Sender: FDA-Public Use
  Company Number: GB-ABBOTT-08P-167-0445780-00

PATIENT
  Age: 70 Year
  Sex: Female

DRUGS (5)
  1. DEPAKOTE [Suspect]
     Indication: DRUG USE FOR UNKNOWN INDICATION
     Route: 065
  2. RISPERIDONE [Suspect]
     Indication: PSYCHOTIC DISORDER
     Route: 030
     Dates: start: 20050517
  3. RISPERIDONE [Suspect]
     Route: 048
     Dates: start: 20050524
  4. RISPERIDONE [Suspect]
     Route: 065
  5. VENLAFAXINE HCL [Concomitant]
     Indication: DRUG USE FOR UNKNOWN INDICATION
     Route: 065
     Dates: start: 20050525

REACTIONS (4)
  - AKATHISIA [None]
  - COORDINATION ABNORMAL [None]
  - DYSKINESIA [None]
  - DYSTONIA [None]
